FAERS Safety Report 5078673-2 (Version None)
Quarter: 2006Q3

REPORT INFORMATION
  Report Type: 
  Country: None (occurrence: None)
  Receive Date: 20060809
  Receipt Date: 20060726
  Transmission Date: 20061208
  Serious: Yes (Hospitalization, Disabling, Other)
  Sender: FDA-Public Use
  Company Number: PAR_0715_2006

PATIENT
  Age: 47 Year
  Sex: Male

DRUGS (3)
  1. DEXAMETHASONE [Suspect]
     Indication: PROPHYLAXIS
     Dosage: 4 MG QDAY
     Dates: start: 20050820, end: 20050830
  2. CISPLATIN [Suspect]
     Indication: SQUAMOUS CELL CARCINOMA
     Dosage: 100 MQ/SQM IV
     Route: 042
     Dates: start: 20050804
  3. FLUOROURACIL [Suspect]
     Indication: SQUAMOUS CELL CARCINOMA
     Dosage: 1000 MQ/SQM IV
     Route: 042
     Dates: start: 20050804

REACTIONS (2)
  - DYSPHAGIA [None]
  - ORAL INTAKE REDUCED [None]
